FAERS Safety Report 8988271 (Version 1)
Quarter: 2012Q4

REPORT INFORMATION
  Report Type: Report from Study
  Country: FR (occurrence: FR)
  Receive Date: 20121227
  Receipt Date: 20121227
  Transmission Date: 20130627
  Serious: Yes (Hospitalization)
  Sender: FDA-Public Use
  Company Number: FR-ASTELLAS-2012EU011081

PATIENT
  Age: 56 Year
  Sex: Male
  Weight: 83 kg

DRUGS (7)
  1. TACROLIMUS SYSTEMIC [Suspect]
     Indication: LIVER TRANSPLANT
     Dosage: 6 mg, Unknown/D
     Route: 065
     Dates: start: 20090920
  2. CELLCEPT                           /01275102/ [Suspect]
     Indication: LIVER TRANSPLANT
     Dosage: 1000 mg, bid
     Route: 048
     Dates: start: 20090920
  3. PREDNISONE [Suspect]
     Indication: LIVER TRANSPLANT
     Dosage: 15 mg, Unknown/D
     Route: 048
     Dates: start: 20090921
  4. ROVALCYTE [Concomitant]
     Dosage: 900 mg, Unknown/D
     Route: 065
     Dates: start: 20090920
  5. INIPOMP [Concomitant]
     Dosage: 40 mg, Unknown/D
     Route: 065
     Dates: start: 20090919
  6. MULTIVITAMIN AND MINERAL SUPPLEMENT [Concomitant]
     Dosage: UNK
     Route: 065
     Dates: start: 20090927, end: 20091027
  7. STILNOX [Concomitant]
     Dosage: UNK
     Route: 065

REACTIONS (4)
  - Coma [Recovered/Resolved]
  - Myoclonus [Unknown]
  - Tremor [Unknown]
  - Confusional state [Unknown]
